FAERS Safety Report 16958274 (Version 1)
Quarter: 2019Q4

REPORT INFORMATION
  Report Type: Spontaneous
  Country: JP (occurrence: JP)
  Receive Date: 20191024
  Receipt Date: 20191024
  Transmission Date: 20200122
  Serious: Yes (Other)
  Sender: FDA-Public Use
  Company Number: JP-BRISTOL-MYERS SQUIBB COMPANY-BMS-2019-100322

PATIENT
  Sex: Female
  Weight: 45.6 kg

DRUGS (2)
  1. HYALURONIC ACID [Concomitant]
     Active Substance: HYALURONIC ACID
     Indication: PRODUCT USED FOR UNKNOWN INDICATION
     Dosage: APPROXIMATELY THREE TIMES
     Route: 065
  2. KENACORT-A [Suspect]
     Active Substance: TRIAMCINOLONE ACETONIDE
     Indication: MUSCULOSKELETAL STIFFNESS
     Dosage: UNAVAILABLE
     Route: 030
     Dates: start: 201906

REACTIONS (7)
  - Abdominal pain upper [Unknown]
  - Weight decreased [Unknown]
  - Fatigue [Unknown]
  - Pyrexia [Unknown]
  - Decreased appetite [Unknown]
  - Liver function test increased [Unknown]
  - Nausea [Unknown]

NARRATIVE: CASE EVENT DATE: 20191011
